FAERS Safety Report 13029639 (Version 1)
Quarter: 2016Q4

REPORT INFORMATION
  Report Type: Other
  Country: GB (occurrence: GB)
  Receive Date: 20161215
  Receipt Date: 20161215
  Transmission Date: 20170207
  Serious: Yes (Disabling, Other)
  Sender: FDA-Public Use
  Company Number: GB-CLARIS PHARMASERVICES-1060827

PATIENT
  Age: 78 Year
  Sex: Male
  Weight: 100 kg

DRUGS (9)
  1. ETODOLAC. [Concomitant]
     Active Substance: ETODOLAC
  2. HYPURIN BOVINE NEUTRAL [Concomitant]
  3. METRONIDAZOLE. [Suspect]
     Active Substance: METRONIDAZOLE
     Indication: UPPER RESPIRATORY TRACT INFECTION
     Route: 048
     Dates: start: 20161114, end: 20161121
  4. AMLODIPINE [Concomitant]
     Active Substance: AMLODIPINE BESYLATE
  5. CODEINE PHOSPHATE [Concomitant]
     Active Substance: CODEINE PHOSPHATE
  6. HYPURIN BOVINE ISOPHANE [Concomitant]
  7. MULTIVITAMIN [Concomitant]
     Active Substance: VITAMINS
  8. OMEPRAZOLE. [Concomitant]
     Active Substance: OMEPRAZOLE
  9. TAMSULOSIN HYDROCHLORIDE. [Concomitant]
     Active Substance: TAMSULOSIN HYDROCHLORIDE

REACTIONS (2)
  - Fatigue [Not Recovered/Not Resolved]
  - Deafness [Not Recovered/Not Resolved]

NARRATIVE: CASE EVENT DATE: 20161116
